FAERS Safety Report 21938128 (Version 1)
Quarter: 2023Q1

REPORT INFORMATION
  Report Type: Spontaneous
  Country: IT (occurrence: IT)
  Receive Date: 20230201
  Receipt Date: 20230201
  Transmission Date: 20230417
  Serious: Yes (Death, Hospitalization)
  Sender: FDA-Public Use
  Company Number: IT-GLAXOSMITHKLINE-IT2023GSK010917

PATIENT

DRUGS (16)
  1. SOTROVIMAB [Suspect]
     Active Substance: SOTROVIMAB
     Indication: Respiratory distress
     Dosage: UNK
     Route: 042
     Dates: start: 2022
  2. SOTROVIMAB [Suspect]
     Active Substance: SOTROVIMAB
     Indication: Pyrexia
     Dosage: SECOND COURSE
     Route: 042
  3. SOTROVIMAB [Suspect]
     Active Substance: SOTROVIMAB
     Indication: COVID-19
  4. MOLNUPIRAVIR [Suspect]
     Active Substance: MOLNUPIRAVIR
     Indication: COVID-19
     Dosage: UNK
     Route: 048
     Dates: start: 2022
  5. BENDAMUSTINE [Concomitant]
     Active Substance: BENDAMUSTINE
     Indication: Non-Hodgkin^s lymphoma
     Dosage: UNK
  6. RITUXIMAB [Concomitant]
     Active Substance: RITUXIMAB
     Indication: Non-Hodgkin^s lymphoma
  7. COVID 19 VACCINE [Concomitant]
     Indication: Prophylaxis
     Dosage: UNK
     Dates: start: 20220109
  8. OXYGEN SUPPORT [Concomitant]
     Indication: Respiratory disorder
  9. OXYGEN SUPPORT [Concomitant]
     Dosage: REDUCED THERAPY
  10. REMDESIVIR [Concomitant]
     Active Substance: REMDESIVIR
     Indication: Respiratory distress
     Dosage: UNK
     Route: 042
  11. REMDESIVIR [Concomitant]
     Active Substance: REMDESIVIR
     Indication: COVID-19
  12. REMDESIVIR [Concomitant]
     Active Substance: REMDESIVIR
     Indication: Respiratory failure
  13. DEXAMETHASONE [Concomitant]
     Active Substance: DEXAMETHASONE
     Indication: Respiratory distress
     Dosage: 6 MG, QD
     Route: 042
  14. DEXAMETHASONE [Concomitant]
     Active Substance: DEXAMETHASONE
     Indication: COVID-19
  15. DEXAMETHASONE [Concomitant]
     Active Substance: DEXAMETHASONE
     Indication: Respiratory failure
  16. NIRMATRELVIR + RITONAVIR [Concomitant]
     Indication: COVID-19

REACTIONS (1)
  - Drug ineffective [Fatal]
